FAERS Safety Report 8424200-9 (Version None)
Quarter: 2012Q2

REPORT INFORMATION
  Report Type: 
  Country: None (occurrence: None)
  Receive Date: 20120608
  Receipt Date: 20120309
  Transmission Date: 20120825
  Serious: No
  Sender: FDA-Public Use
  Company Number: US-ASTRAZENECA-2012SE16871

PATIENT
  Sex: Female
  Weight: 49.9 kg

DRUGS (2)
  1. PULMICORT [Suspect]
     Indication: EMPHYSEMA
     Route: 055
  2. PULMICORT [Suspect]
     Indication: DYSPNOEA
     Route: 055

REACTIONS (3)
  - DYSPNOEA [None]
  - OFF LABEL USE [None]
  - DRY MOUTH [None]
